FAERS Safety Report 21684231 (Version 1)
Quarter: 2022Q4

REPORT INFORMATION
  Report Type: Spontaneous
  Country: US (occurrence: US)
  Receive Date: 20221205
  Receipt Date: 20221205
  Transmission Date: 20230113
  Serious: No
  Sender: FDA-Public Use
  Company Number: US-ELI_LILLY_AND_COMPANY-US202211004066

PATIENT
  Age: 52 Year
  Sex: Female

DRUGS (4)
  1. BEBTELOVIMAB [Suspect]
     Active Substance: BEBTELOVIMAB
     Indication: COVID-19
     Dosage: UNK UNK, UNKNOWN
     Route: 065
     Dates: start: 20221102
  2. VITAMIN C [Concomitant]
     Active Substance: ASCORBIC ACID
     Dosage: UNK UNK, UNKNOWN
     Route: 065
     Dates: start: 20221106
  3. VITAMIN B [Concomitant]
     Active Substance: VITAMIN B
     Dosage: UNK UNK, UNKNOWN
     Route: 065
     Dates: start: 20221106
  4. CHOLECALCIFEROL [Concomitant]
     Active Substance: CHOLECALCIFEROL
     Dosage: UNK UNK, UNKNOWN
     Route: 065
     Dates: start: 20221106

REACTIONS (8)
  - Asthenia [Recovering/Resolving]
  - Somnolence [Recovering/Resolving]
  - Vibratory sense increased [Recovering/Resolving]
  - Feeling abnormal [Recovering/Resolving]
  - Blood pressure fluctuation [Recovering/Resolving]
  - Dyspnoea [Recovering/Resolving]
  - Heart rate abnormal [Recovering/Resolving]
  - Panic disorder [Recovering/Resolving]

NARRATIVE: CASE EVENT DATE: 20221106
